FAERS Safety Report 23215457 (Version 1)
Quarter: 2023Q4

REPORT INFORMATION
  Report Type: Spontaneous
  Country: IT (occurrence: IT)
  Receive Date: 20231122
  Receipt Date: 20231122
  Transmission Date: 20240110
  Serious: Yes (Other)
  Sender: FDA-Public Use
  Company Number: IT-SA-2023SA358351

PATIENT

DRUGS (1)
  1. VANDETANIB [Suspect]
     Active Substance: VANDETANIB
     Indication: Medullary thyroid cancer

REACTIONS (1)
  - Primary adrenal insufficiency [Unknown]
